FAERS Safety Report 21414415 (Version 1)
Quarter: 2022Q4

REPORT INFORMATION
  Report Type: Spontaneous
  Country: IT (occurrence: IT)
  Receive Date: 20221006
  Receipt Date: 20221006
  Transmission Date: 20230112
  Serious: Yes (Other)
  Sender: FDA-Public Use
  Company Number: None

PATIENT
  Age: 45 Year
  Sex: Female

DRUGS (3)
  1. LEMTRADA [Suspect]
     Active Substance: ALEMTUZUMAB
     Indication: Relapsing-remitting multiple sclerosis
     Dosage: 12 MG, QD
     Route: 042
     Dates: start: 201902, end: 201902
  2. LEMTRADA [Suspect]
     Active Substance: ALEMTUZUMAB
     Dosage: 12 MG, QD
     Route: 042
     Dates: start: 202002, end: 202002
  3. MAVENCLAD [Concomitant]
     Active Substance: CLADRIBINE
     Dosage: PROVIDES 2 TREATMENT COURSES. THE CUMULATIVE RECOMMENDED DOSE IS 3.5 MG / KG BODY WEIGHT OVER 2 YEAR
     Route: 048
     Dates: start: 202103, end: 202204

REACTIONS (1)
  - Breast cancer [Recovering/Resolving]

NARRATIVE: CASE EVENT DATE: 20220615
